FAERS Safety Report 9053795 (Version 1)
Quarter: 2013Q1

REPORT INFORMATION
  Report Type: Spontaneous
  Country: US (occurrence: None)
  Receive Date: 20130201
  Receipt Date: 20130201
  Transmission Date: 20140127
  Serious: Yes (Hospitalization)
  Sender: FDA-Public Use
  Company Number: None

PATIENT
  Age: 69 Year
  Sex: Female

DRUGS (2)
  1. PEGASYS [Suspect]
     Indication: HEPATITIS C
     Dosage: 1 INJECTION OF 0.5ML 1 PER WEEK SQ
     Route: 058
     Dates: start: 20130124, end: 20130127
  2. RIBAVIRIN 200MG AUROBINDO [Suspect]
     Indication: HEPATITIS C
     Dosage: 2 TABS BID PO
     Route: 048
     Dates: start: 20130124, end: 20130127

REACTIONS (1)
  - Acute myocardial infarction [None]
